FAERS Safety Report 8200779-7 (Version None)
Quarter: 2012Q1

REPORT INFORMATION
  Report Type: 
  Country: None (occurrence: None)
  Receive Date: 20120312
  Receipt Date: 20120301
  Transmission Date: 20120608
  Serious: Yes (Death, Other)
  Sender: FDA-Public Use
  Company Number: FR-TEVA-2011002227

PATIENT
  Sex: Female
  Weight: 58 kg

DRUGS (11)
  1. POLYETHYLENE GLYCOL [Concomitant]
  2. AMITRIPTYLINE HCL [Concomitant]
     Route: 048
  3. HEXTRIL [Concomitant]
  4. MODAFANIL [Suspect]
     Indication: NARCOLEPSY
     Dosage: 100 MILLIGRAM;
     Route: 048
     Dates: start: 19980101
  5. LEVOTHYROXINE SODIUM [Concomitant]
     Dosage: 1.5 DOSAGE FORMS;
  6. SKENAN PR [Concomitant]
     Dosage: 20 MILLIGRAM;
  7. VOLTARENE EMULGEL 1% [Concomitant]
  8. LEXOMIL ROCH [Concomitant]
     Dosage: .25 DOSAGE FORMS;
  9. ACETAMINOPHEN [Concomitant]
  10. DOMPERIDONE SANDOZ [Concomitant]
     Dosage: 1 DOSAGE FORMS;
     Route: 048
  11. CELLUVISC [Concomitant]
     Dosage: 4 GTT;

REACTIONS (5)
  - PANCYTOPENIA [None]
  - ANAEMIA [None]
  - LEUKOPENIA [None]
  - THROMBOCYTOPENIA [None]
  - DEATH [None]
